FAERS Safety Report 12677684 (Version 1)
Quarter: 2016Q3

REPORT INFORMATION
  Report Type: Spontaneous
  Country: DE (occurrence: DE)
  Receive Date: 20160823
  Receipt Date: 20160823
  Transmission Date: 20161109
  Serious: Yes (Hospitalization)
  Sender: FDA-Public Use
  Company Number: DE-TEVA-684748GER

PATIENT
  Age: 63 Year
  Sex: Female

DRUGS (1)
  1. FEM7 CONTI [Suspect]
     Active Substance: ESTRADIOL HEMIHYDRATE\LEVONORGESTREL
     Dosage: THERAPY START ABOUT 3 YEARS AGO; ONE PATCH CONTAINS 1.5MG ESTRADIOL AND 0.525MG LEVONORGESTEL

REACTIONS (1)
  - Haemorrhage [Recovering/Resolving]

NARRATIVE: CASE EVENT DATE: 20160718
